FAERS Safety Report 6041584-X (Version None)
Quarter: 2009Q1

REPORT INFORMATION
  Report Type: 
  Country: None (occurrence: None)
  Receive Date: 20090116
  Receipt Date: 20081023
  Transmission Date: 20090719
  Serious: No
  Sender: FDA-Public Use
  Company Number: US-BRISTOL-MYERS SQUIBB COMPANY-14382543

PATIENT

DRUGS (2)
  1. ABILIFY [Suspect]
     Indication: POSTPARTUM DEPRESSION
  2. LEXAPRO [Suspect]
     Indication: POSTPARTUM DEPRESSION

REACTIONS (1)
  - DRUG INEFFECTIVE [None]
